FAERS Safety Report 24985498 (Version 1)
Quarter: 2025Q1

REPORT INFORMATION
  Report Type: Spontaneous
  Country: US (occurrence: None)
  Receive Date: 20250219
  Receipt Date: 20250219
  Transmission Date: 20250408
  Serious: Yes (Death)
  Sender: FDA-CTU
  Company Number: None

PATIENT
  Age: 69 Year
  Sex: Female
  Weight: 43.2 kg

DRUGS (2)
  1. XELODA [Suspect]
     Active Substance: CAPECITABINE
     Dates: end: 20241113
  2. OXALIPLATIN [Suspect]
     Active Substance: OXALIPLATIN
     Dates: end: 20241029

REACTIONS (7)
  - Diarrhoea [None]
  - Unresponsive to stimuli [None]
  - Cardio-respiratory arrest [None]
  - Hypotension [None]
  - Generalised tonic-clonic seizure [None]
  - Shock [None]
  - Multiple organ dysfunction syndrome [None]

NARRATIVE: CASE EVENT DATE: 20241123
